FAERS Safety Report 9038275 (Version 1)
Quarter: 2013Q1

REPORT INFORMATION
  Report Type: Spontaneous
  Country: US (occurrence: US)
  Receive Date: 20130129
  Receipt Date: 20130129
  Transmission Date: 20140127
  Serious: Yes (Other)
  Sender: FDA-Public Use
  Company Number: US-009507513-1301USA011267

PATIENT
  Sex: Male

DRUGS (1)
  1. CLARITIN REDITABS 12HR [Suspect]
     Indication: SUICIDE ATTEMPT
     Dosage: 10 MG, UNKNOWN
     Route: 048

REACTIONS (1)
  - Suicide attempt [Unknown]
